FAERS Safety Report 7766242-2 (Version None)
Quarter: 2011Q3

REPORT INFORMATION
  Report Type: 
  Country: None (occurrence: None)
  Receive Date: 20110921
  Receipt Date: 20110907
  Transmission Date: 20111222
  Serious: Yes (Other)
  Sender: FDA-Public Use
  Company Number: GB-BAUSCH-2011BL006250

PATIENT
  Age: 56 Year
  Sex: Male

DRUGS (4)
  1. PREDNISOLONE [Suspect]
     Indication: IMMUNOSUPPRESSION
     Dosage: DOSE UNIT:UNKNOWN
     Dates: start: 19980101
  2. METHYLPREDNISOLONE [Suspect]
     Indication: IMMUNOSUPPRESSION
     Dates: start: 19980101
  3. MYCOPHENOLATE MOFETIL [Suspect]
     Indication: TRANSPLANT REJECTION
     Dates: start: 20070101, end: 20100301
  4. TACROLIMUS [Suspect]
     Indication: IMMUNOSUPPRESSION
     Dates: start: 19980101

REACTIONS (1)
  - LYMPHOPROLIFERATIVE DISORDER [None]
